FAERS Safety Report 18156976 (Version 1)
Quarter: 2020Q3

REPORT INFORMATION
  Report Type: Spontaneous
  Country: US (occurrence: US)
  Receive Date: 20200817
  Receipt Date: 20200817
  Transmission Date: 20201103
  Serious: No
  Sender: FDA-Public Use
  Company Number: US-JNJFOC-20200815157

PATIENT
  Sex: Female
  Weight: 133 kg

DRUGS (2)
  1. STELARA [Suspect]
     Active Substance: USTEKINUMAB
     Indication: CROHN^S DISEASE
     Route: 058
     Dates: start: 202002
  2. STELARA [Suspect]
     Active Substance: USTEKINUMAB

REACTIONS (3)
  - Diarrhoea [Not Recovered/Not Resolved]
  - Constipation [Unknown]
  - Contraindication to vaccination [Unknown]

NARRATIVE: CASE EVENT DATE: 2020
